FAERS Safety Report 6263379-4 (Version None)
Quarter: 2009Q3

REPORT INFORMATION
  Report Type: 
  Country: None (occurrence: None)
  Receive Date: 20090710
  Receipt Date: 20090130
  Transmission Date: 20100115
  Serious: No
  Sender: FDA-Public Use
  Company Number: A0746587A

PATIENT
  Age: 6 Year
  Sex: Female

DRUGS (1)
  1. FLOVENT [Suspect]
     Indication: ASTHMA
     Dosage: 1PUFF TWICE PER DAY
     Route: 055
     Dates: start: 20080101, end: 20080905

REACTIONS (3)
  - PRODUCT QUALITY ISSUE [None]
  - RASH [None]
  - RASH GENERALISED [None]
